FAERS Safety Report 6289033-0 (Version None)
Quarter: 2009Q3

REPORT INFORMATION
  Report Type: 
  Country: None (occurrence: None)
  Receive Date: 20090729
  Receipt Date: 20090721
  Transmission Date: 20100115
  Serious: Yes (Disabling, Other)
  Sender: FDA-Public Use
  Company Number: PHHO2009CA00630

PATIENT

DRUGS (2)
  1. RAD 666 RAD+TAB [Suspect]
     Indication: METASTATIC RENAL CELL CARCINOMA
     Dosage: 10 MG, QD
     Route: 048
     Dates: start: 20081108, end: 20090105
  2. RAD 666 RAD+TAB [Suspect]
     Dosage: 5 MG, QD
     Route: 048
     Dates: start: 20090120, end: 20090225

REACTIONS (6)
  - BUNDLE BRANCH BLOCK RIGHT [None]
  - COUGH [None]
  - DYSPNOEA [None]
  - FATIGUE [None]
  - INTERSTITIAL LUNG DISEASE [None]
  - SYNCOPE [None]
